FAERS Safety Report 7389782-7 (Version None)
Quarter: 2011Q2

REPORT INFORMATION
  Report Type: 
  Country: None (occurrence: None)
  Receive Date: 20110401
  Receipt Date: 20110325
  Transmission Date: 20111010
  Serious: Yes (Death, Other)
  Sender: FDA-Public Use
  Company Number: US-GENZYME-FLUD-1000948

PATIENT
  Age: 67 Year

DRUGS (9)
  1. ATGAM [Suspect]
     Indication: MYELOFIBROSIS
  2. FLUDARA [Suspect]
     Indication: STEM CELL TRANSPLANT
     Dosage: 5 X 15 MG/M2
     Route: 065
  3. MELPHALAN [Suspect]
     Indication: STEM CELL TRANSPLANT
     Dosage: 70 MG/M2 X 2
     Route: 065
  4. FLUDARA [Suspect]
     Indication: MYELOFIBROSIS
  5. MELPHALAN [Suspect]
     Indication: MYELOFIBROSIS
  6. TACROLIMUS [Concomitant]
     Indication: PROPHYLAXIS AGAINST GRAFT VERSUS HOST DISEASE
     Route: 065
  7. METHOTREXATE [Concomitant]
     Indication: PROPHYLAXIS AGAINST GRAFT VERSUS HOST DISEASE
     Route: 065
  8. ATGAM [Suspect]
     Indication: STEM CELL TRANSPLANT
     Dosage: 4 X 10 MG/KG
     Route: 065
  9. PENTOSTATIN [Concomitant]
     Indication: PROPHYLAXIS AGAINST GRAFT VERSUS HOST DISEASE
     Route: 065

REACTIONS (4)
  - ACUTE GRAFT VERSUS HOST DISEASE [None]
  - ENGRAFT FAILURE [None]
  - NEOPLASM MALIGNANT [None]
  - CHRONIC GRAFT VERSUS HOST DISEASE [None]
